FAERS Safety Report 6555392-4 (Version None)
Quarter: 2010Q1

REPORT INFORMATION
  Report Type: 
  Country: None (occurrence: None)
  Receive Date: 20100128
  Receipt Date: 20090925
  Transmission Date: 20100710
  Serious: No
  Sender: FDA-Public Use
  Company Number: A0809070A

PATIENT
  Age: 59 Year
  Sex: Male

DRUGS (7)
  1. BUPROPION HYDROCHLORIDE [Suspect]
     Dosage: 100MG PER DAY
     Route: 048
     Dates: start: 20090401
  2. DIVALPROEX SODIUM [Suspect]
     Dates: start: 20090601
  3. VERAPAMIL [Concomitant]
  4. LISINOPRIL [Concomitant]
  5. OMEPRAZOLE [Concomitant]
  6. CENTRUM SILVER [Concomitant]
  7. VIOTINIC [Concomitant]

REACTIONS (1)
  - ALOPECIA [None]
